FAERS Safety Report 4622631-6 (Version None)
Quarter: 2005Q1

REPORT INFORMATION
  Report Type: 
  Country: None (occurrence: None)
  Receive Date: 20050328
  Receipt Date: 20050328
  Transmission Date: 20050727
  Serious: No
  Sender: FDA-Public Use
  Company Number: None

PATIENT
  Sex: Female

DRUGS (1)
  1. PRED FORTE [Suspect]
     Indication: CORNEAL GRAFT REJECTION
     Dosage: ONE DROP Q2 OS
     Route: 031

REACTIONS (1)
  - PHARMACEUTICAL PRODUCT COMPLAINT [None]
